FAERS Safety Report 10375849 (Version 2)
Quarter: 2016Q1

REPORT INFORMATION
  Report Type: Spontaneous
  Country: US (occurrence: US)
  Receive Date: 20140811
  Receipt Date: 20160317
  Transmission Date: 20160525
  Serious: Yes (Hospitalization, Other)
  Sender: FDA-Public Use
  Company Number: US-GLAXOSMITHKLINE-A1083728A

PATIENT
  Age: 47 Year
  Sex: Female

DRUGS (12)
  1. FUROSEMIDE. [Concomitant]
     Active Substance: FUROSEMIDE
  2. MS CONTIN [Concomitant]
     Active Substance: MORPHINE SULFATE
  3. NUVIGIL [Concomitant]
     Active Substance: ARMODAFINIL
  4. XANAX [Concomitant]
     Active Substance: ALPRAZOLAM
  5. ZETIA [Concomitant]
     Active Substance: EZETIMIBE
  6. LAMOTRIGINE. [Concomitant]
     Active Substance: LAMOTRIGINE
  7. BENLYSTA [Suspect]
     Active Substance: BELIMUMAB
     Indication: SYSTEMIC LUPUS ERYTHEMATOSUS
     Dosage: UNKNOWN STRENGTH AND DOSNG
     Route: 042
     Dates: start: 2010
  8. OXYCODONE [Concomitant]
     Active Substance: OXYCODONE
  9. CRESTOR [Concomitant]
     Active Substance: ROSUVASTATIN CALCIUM
  10. SOMA [Concomitant]
     Active Substance: CARISOPRODOL
  11. ADDERALL XR [Concomitant]
     Active Substance: AMPHETAMINE ASPARTATE\AMPHETAMINE SULFATE\DEXTROAMPHETAMINE SACCHARATE\DEXTROAMPHETAMINE SULFATE
  12. OLANZAPINE. [Concomitant]
     Active Substance: OLANZAPINE

REACTIONS (12)
  - Weight fluctuation [Unknown]
  - Menopause [Unknown]
  - Amnesia [Unknown]
  - Nasopharyngitis [Unknown]
  - Enteritis infectious [Unknown]
  - Eructation [Unknown]
  - Malaise [Unknown]
  - Feeling abnormal [Unknown]
  - Renal failure [Unknown]
  - Breast conserving surgery [Not Recovered/Not Resolved]
  - Diarrhoea [Unknown]
  - Biopsy [Unknown]

NARRATIVE: CASE EVENT DATE: 20140508
